FAERS Safety Report 12009966 (Version 1)
Quarter: 2016Q1

REPORT INFORMATION
  Report Type: Spontaneous
  Country: RU (occurrence: RU)
  Receive Date: 20160205
  Receipt Date: 20160205
  Transmission Date: 20160526
  Serious: Yes (Other)
  Sender: FDA-Public Use
  Company Number: RU-TEVA-628878ISR

PATIENT
  Age: 3 Year
  Sex: Female

DRUGS (1)
  1. SUMAMED FORTE SIRUP [Suspect]
     Active Substance: AZITHROMYCIN DIHYDRATE
     Indication: CATARRH
     Route: 048

REACTIONS (3)
  - Vomiting [Recovered/Resolved]
  - Hallucination [Recovered/Resolved]
  - Neurosis [Recovered/Resolved]
